APPROVED DRUG PRODUCT: CIMETIDINE HYDROCHLORIDE
Active Ingredient: CIMETIDINE HYDROCHLORIDE
Strength: EQ 300MG BASE/5ML
Dosage Form/Route: SOLUTION;ORAL
Application: A074757 | Product #001
Applicant: PHARMOBEDIENT CONSULTING
Approved: Oct 17, 1997 | RLD: No | RS: No | Type: DISCN